FAERS Safety Report 9032020 (Version 1)
Quarter: 2013Q1

REPORT INFORMATION
  Report Type: Spontaneous
  Country: US (occurrence: US)
  Receive Date: 20130125
  Receipt Date: 20130125
  Transmission Date: 20140127
  Serious: Yes (Other)
  Sender: FDA-Public Use
  Company Number: US-PFIZER INC-2013030074

PATIENT
  Age: 48 Year
  Sex: Female

DRUGS (4)
  1. LYRICA [Suspect]
     Indication: TRIGEMINAL NEURALGIA
  2. OXYCONTIN [Concomitant]
  3. FENTANYL PATCH [Concomitant]
  4. OXYCODONE [Concomitant]

REACTIONS (3)
  - Wrist fracture [Unknown]
  - Fall [Unknown]
  - Head injury [Unknown]
